FAERS Safety Report 21927307 (Version 2)
Quarter: 2023Q2

REPORT INFORMATION
  Report Type: Spontaneous
  Country: US (occurrence: US)
  Receive Date: 20230130
  Receipt Date: 20230627
  Transmission Date: 20230722
  Serious: Yes (Other)
  Sender: FDA-Public Use
  Company Number: US-JNJFOC-20230149238

PATIENT
  Sex: Male

DRUGS (5)
  1. TYLENOL EXTRA STRENGTH [Suspect]
     Active Substance: ACETAMINOPHEN
     Indication: Product used for unknown indication
     Route: 064
     Dates: start: 200802, end: 200807
  2. TYLENOL EXTRA STRENGTH [Suspect]
     Active Substance: ACETAMINOPHEN
     Indication: Pain
     Dosage: BOTTLE OR PACKAGING SIZE (I.E., NUMBER OF PILLS) WAS 100, AS TWO TO THREE TIMES A WEEK OR AS NEEDED
     Route: 064
     Dates: start: 200801, end: 2012
  3. TYLENOL EXTRA STRENGTH [Suspect]
     Active Substance: ACETAMINOPHEN
     Indication: Carpal tunnel syndrome
  4. EQUATE PAIN RELIEVER [Suspect]
     Active Substance: ACETAMINOPHEN
     Indication: Pain
     Dosage: BOTTLE OR PACKAGING SIZE (I.E. NUMBER OF PILLS) WAS 24, AS NEEDED
     Route: 064
     Dates: start: 200804, end: 200806
  5. EQUATE PAIN RELIEVER [Suspect]
     Active Substance: ACETAMINOPHEN
     Indication: Carpal tunnel syndrome

REACTIONS (2)
  - Autism spectrum disorder [Unknown]
  - Foetal exposure during pregnancy [Unknown]

NARRATIVE: CASE EVENT DATE: 20080101
